FAERS Safety Report 5600821-3 (Version None)
Quarter: 2008Q1

REPORT INFORMATION
  Report Type: 
  Country: None (occurrence: None)
  Receive Date: 20080123
  Receipt Date: 20080113
  Transmission Date: 20080703
  Serious: Yes (Other)
  Sender: FDA-Public Use
  Company Number: US-PFIZER INC-2008004631

PATIENT
  Sex: Male

DRUGS (1)
  1. CELEBREX [Suspect]

REACTIONS (4)
  - BRADYCARDIA [None]
  - CHEST PAIN [None]
  - HYPERSENSITIVITY [None]
  - PALPITATIONS [None]
